FAERS Safety Report 25685355 (Version 1)
Quarter: 2025Q3

REPORT INFORMATION
  Report Type: Report from Study
  Country: US (occurrence: US)
  Receive Date: 20250815
  Receipt Date: 20250815
  Transmission Date: 20251020
  Serious: Yes (Hospitalization)
  Sender: TG THERAPEUTICS
  Company Number: US-TG THERAPEUTICS INC.-TGT005710

PATIENT

DRUGS (3)
  1. UBLITUXIMAB [Suspect]
     Active Substance: UBLITUXIMAB
     Indication: Multiple sclerosis
     Route: 042
     Dates: start: 20240328, end: 20240328
  2. UBLITUXIMAB [Suspect]
     Active Substance: UBLITUXIMAB
     Route: 042
     Dates: start: 20250417, end: 20250417
  3. UNSPECIFIED INGREDIENT [Concomitant]
     Active Substance: UNSPECIFIED INGREDIENT
     Dates: start: 20250730, end: 20250730

REACTIONS (11)
  - Multiple sclerosis relapse [Unknown]
  - Multiple sclerosis [Unknown]
  - Vision blurred [Unknown]
  - Dysphagia [Unknown]
  - Bladder disorder [Unknown]
  - Memory impairment [Unknown]
  - Pain in extremity [Unknown]
  - Oedema peripheral [Unknown]
  - Asthenia [Unknown]
  - Dyspnoea [Unknown]
  - Chest discomfort [Unknown]

NARRATIVE: CASE EVENT DATE: 20250101
